FAERS Safety Report 9410445 (Version 1)
Quarter: 2013Q3

REPORT INFORMATION
  Report Type: Spontaneous
  Country: US (occurrence: US)
  Receive Date: 20130719
  Receipt Date: 20130719
  Transmission Date: 20140515
  Serious: Yes (Other)
  Sender: FDA-Public Use
  Company Number: US-AMGEN-USASP2013049434

PATIENT
  Age: 9 Year
  Sex: Female
  Weight: 27.21 kg

DRUGS (6)
  1. ENBREL [Suspect]
     Indication: PRODUCT USED FOR UNKNOWN INDICATION
     Dosage: 25 MG, QWK
     Route: 065
  2. METHOTREXATE [Concomitant]
     Dosage: 2.5 MG, UNK
  3. FOCALIN [Concomitant]
     Dosage: 15 MG, UNK
  4. PRILOSEC                           /00661201/ [Concomitant]
     Dosage: 20 MG, UNK
  5. MOBIC [Concomitant]
     Dosage: 7.5 MG, UNK
  6. FOLIC ACID [Concomitant]
     Dosage: UNK

REACTIONS (6)
  - Petit mal epilepsy [Not Recovered/Not Resolved]
  - Drug effect decreased [Not Recovered/Not Resolved]
  - Scratch [Recovered/Resolved]
  - Fungal infection [Recovered/Resolved]
  - Tinea infection [Recovered/Resolved]
  - Lymphadenopathy [Recovered/Resolved]
